FAERS Safety Report 19944147 (Version 3)
Quarter: 2021Q4

REPORT INFORMATION
  Report Type: Spontaneous
  Country: BR (occurrence: BR)
  Receive Date: 20211011
  Receipt Date: 20211125
  Transmission Date: 20220303
  Serious: Yes (Other)
  Sender: FDA-Public Use
  Company Number: BR-TAKEDA-2021TUS026146

PATIENT

DRUGS (1)
  1. LISDEXAMFETAMINE DIMESYLATE [Suspect]
     Active Substance: LISDEXAMFETAMINE DIMESYLATE
     Indication: Product used for unknown indication
     Dosage: UNKNOWN
     Route: 065

REACTIONS (7)
  - Therapeutic product effect decreased [Unknown]
  - Disturbance in attention [Unknown]
  - Irritability [Unknown]
  - Anger [Unknown]
  - Therapeutic product effect delayed [Unknown]
  - Depression [Unknown]
  - Self esteem decreased [Unknown]
